FAERS Safety Report 21910036 (Version 1)
Quarter: 2023Q1

REPORT INFORMATION
  Report Type: Spontaneous
  Country: CA (occurrence: CA)
  Receive Date: 20230125
  Receipt Date: 20230125
  Transmission Date: 20230417
  Serious: Yes (Other)
  Sender: FDA-Public Use
  Company Number: CA-002147023-NVSC2023CA012308

PATIENT
  Age: 78 Year
  Sex: Female

DRUGS (1)
  1. ADALIMUMAB [Suspect]
     Active Substance: ADALIMUMAB
     Indication: Silicon granuloma
     Dosage: 40 MG, Q2W
     Route: 058

REACTIONS (2)
  - Silicon granuloma [Recovered/Resolved]
  - Off label use [Recovered/Resolved]
